FAERS Safety Report 4818973-1 (Version None)
Quarter: 2005Q4

REPORT INFORMATION
  Report Type: 
  Country: None (occurrence: None)
  Receive Date: 20051102
  Receipt Date: 20051102
  Transmission Date: 20060501
  Serious: No
  Sender: FDA-Public Use
  Company Number: None

PATIENT
  Sex: Male
  Weight: 81 kg

DRUGS (1)
  1. EZETIMIBE    10 MG [Suspect]
     Indication: DYSLIPIDAEMIA
     Dosage: 10 MG   QD    PO
     Route: 048
     Dates: start: 20050607, end: 20050726

REACTIONS (4)
  - BACK PAIN [None]
  - FATIGUE [None]
  - PAIN [None]
  - PAIN IN EXTREMITY [None]
